FAERS Safety Report 9629779 (Version 1)
Quarter: 2013Q4

REPORT INFORMATION
  Report Type: Spontaneous
  Country: US (occurrence: US)
  Receive Date: 20131017
  Receipt Date: 20131017
  Transmission Date: 20140711
  Serious: Yes (Other)
  Sender: FDA-Public Use
  Company Number: US-PFIZER INC-2013298044

PATIENT
  Age: 88 Year
  Sex: Female

DRUGS (3)
  1. ZOLOFT [Suspect]
     Indication: DEPRESSION
     Dosage: UNK
  2. LASIX [Suspect]
     Dosage: UNK
  3. COUMADINE [Suspect]
     Dosage: UNK

REACTIONS (3)
  - Flat affect [Unknown]
  - Depressed mood [Unknown]
  - International normalised ratio increased [Unknown]
